FAERS Safety Report 25346814 (Version 1)
Quarter: 2025Q2

REPORT INFORMATION
  Report Type: Spontaneous
  Country: US (occurrence: US)
  Receive Date: 20250522
  Receipt Date: 20250522
  Transmission Date: 20250717
  Serious: Yes (Death, Other)
  Sender: Steriscience PTE
  Company Number: US-STERISCIENCE B.V.-2025-ST-000942

PATIENT
  Age: 64 Year
  Sex: Male

DRUGS (28)
  1. VANCOMYCIN [Suspect]
     Active Substance: VANCOMYCIN
     Indication: Staphylococcal infection
     Route: 065
  2. VANCOMYCIN [Suspect]
     Active Substance: VANCOMYCIN
     Indication: Haematological infection
  3. VANCOMYCIN [Suspect]
     Active Substance: VANCOMYCIN
     Indication: Pneumonia
  4. VANCOMYCIN [Suspect]
     Active Substance: VANCOMYCIN
     Indication: Thrombophlebitis septic
  5. VANCOMYCIN [Suspect]
     Active Substance: VANCOMYCIN
     Indication: Arthritis infective
  6. VANCOMYCIN [Suspect]
     Active Substance: VANCOMYCIN
     Indication: Eye infection staphylococcal
  7. VANCOMYCIN [Suspect]
     Active Substance: VANCOMYCIN
     Indication: Catheter site infection
  8. CEFTAROLINE [Suspect]
     Active Substance: CEFTAROLINE
     Indication: Staphylococcal infection
     Route: 065
  9. CEFTAROLINE [Suspect]
     Active Substance: CEFTAROLINE
     Indication: Haematological infection
  10. CEFTAROLINE [Suspect]
     Active Substance: CEFTAROLINE
     Indication: Thrombophlebitis septic
  11. CEFTAROLINE [Suspect]
     Active Substance: CEFTAROLINE
     Indication: Pneumonia
  12. CEFTAROLINE [Suspect]
     Active Substance: CEFTAROLINE
     Indication: Arthritis infective
  13. CEFTAROLINE [Suspect]
     Active Substance: CEFTAROLINE
     Indication: Eye infection staphylococcal
  14. CEFTAROLINE [Suspect]
     Active Substance: CEFTAROLINE
     Indication: Catheter site infection
  15. LINEZOLID [Suspect]
     Active Substance: LINEZOLID
     Indication: Staphylococcal infection
     Route: 065
  16. LINEZOLID [Suspect]
     Active Substance: LINEZOLID
     Indication: Haematological infection
  17. LINEZOLID [Suspect]
     Active Substance: LINEZOLID
     Indication: Thrombophlebitis septic
  18. LINEZOLID [Suspect]
     Active Substance: LINEZOLID
     Indication: Pneumonia
  19. LINEZOLID [Suspect]
     Active Substance: LINEZOLID
     Indication: Arthritis infective
  20. LINEZOLID [Suspect]
     Active Substance: LINEZOLID
     Indication: Eye infection staphylococcal
  21. LINEZOLID [Suspect]
     Active Substance: LINEZOLID
     Indication: Catheter site infection
  22. DAPTOMYCIN [Suspect]
     Active Substance: DAPTOMYCIN
     Indication: Staphylococcal infection
     Route: 065
  23. DAPTOMYCIN [Suspect]
     Active Substance: DAPTOMYCIN
     Indication: Haematological infection
  24. DAPTOMYCIN [Suspect]
     Active Substance: DAPTOMYCIN
     Indication: Thrombophlebitis septic
  25. DAPTOMYCIN [Suspect]
     Active Substance: DAPTOMYCIN
     Indication: Pneumonia
  26. DAPTOMYCIN [Suspect]
     Active Substance: DAPTOMYCIN
     Indication: Arthritis infective
  27. DAPTOMYCIN [Suspect]
     Active Substance: DAPTOMYCIN
     Indication: Eye infection staphylococcal
  28. DAPTOMYCIN [Suspect]
     Active Substance: DAPTOMYCIN
     Indication: Catheter site infection

REACTIONS (1)
  - Drug ineffective [Fatal]
